FAERS Safety Report 16012433 (Version 1)
Quarter: 2019Q1

REPORT INFORMATION
  Report Type: Spontaneous
  Country: US (occurrence: US)
  Receive Date: 20190227
  Receipt Date: 20190227
  Transmission Date: 20190418
  Serious: No
  Sender: FDA-Public Use
  Company Number: US-JNJFOC-20160201465

PATIENT
  Age: 65 Year
  Sex: Female
  Weight: 55.34 kg

DRUGS (1)
  1. SUDAFED NASAL DECONGESTANT MAXIMUM STRENGTH [Suspect]
     Active Substance: PSEUDOEPHEDRINE HYDROCHLORIDE
     Indication: SINUS CONGESTION
     Dosage: 2 CAPLETS 3 TIMES FROM 31-JAN-2016 UNTIL THE MORNING OF 1-JAN-2016
     Route: 048
     Dates: start: 20160131

REACTIONS (1)
  - Drug ineffective [Unknown]
